FAERS Safety Report 20863305 (Version 1)
Quarter: 2022Q2

REPORT INFORMATION
  Report Type: Spontaneous
  Country: US (occurrence: US)
  Receive Date: 20220523
  Receipt Date: 20220523
  Transmission Date: 20220721
  Serious: No
  Sender: FDA-Public Use
  Company Number: US-PFIZER INC-202200584814

PATIENT
  Age: 37 Year
  Sex: Female

DRUGS (1)
  1. ZYVOX [Suspect]
     Active Substance: LINEZOLID
     Dosage: 600 MG TABLET, TAKE 1 TABLET BY MOUTH EVERY 12 HOURS
     Route: 048

REACTIONS (1)
  - Wound [Recovering/Resolving]
